FAERS Safety Report 7623050-0 (Version None)
Quarter: 2011Q3

REPORT INFORMATION
  Report Type: 
  Country: None (occurrence: None)
  Receive Date: 20110720
  Receipt Date: 20110715
  Transmission Date: 20111222
  Serious: Yes (Hospitalization)
  Sender: FDA-Public Use
  Company Number: US-B.I. PHARMACEUTICALS,INC./RIDGEFIELD-2011-BP-16245BP

PATIENT
  Age: 76 Year
  Sex: Male

DRUGS (6)
  1. PROCRIT [Concomitant]
  2. METOPROLOL TARTRATE [Concomitant]
  3. IMDUR [Concomitant]
  4. PRADAXA [Suspect]
     Indication: ATRIAL FIBRILLATION
     Dosage: 300 MG
     Route: 048
     Dates: end: 20110510
  5. JANUVIA [Concomitant]
  6. AMLODIPINE [Concomitant]

REACTIONS (1)
  - URINARY BLADDER HAEMORRHAGE [None]
